FAERS Safety Report 18559065 (Version 3)
Quarter: 2021Q3

REPORT INFORMATION
  Report Type: Report from Study
  Country: FR (occurrence: FR)
  Receive Date: 20201130
  Receipt Date: 20210707
  Transmission Date: 20211014
  Serious: Yes (Hospitalization)
  Sender: FDA-Public Use
  Company Number: FR-ROCHE-2718819

PATIENT
  Age: 70 Year
  Sex: Male
  Weight: 68 kg

DRUGS (2)
  1. LENALIDOMIDE [Suspect]
     Active Substance: LENALIDOMIDE
     Indication: MANTLE CELL LYMPHOMA
     Dosage: THE LAST DOSE OF LENALIDOMIDE BEFORE SERIOUS ADVERSE EVENT WAS ADMINISTERED ON 24/AUG/2020
     Route: 065
     Dates: start: 20200523
  2. RITUXIMAB. [Suspect]
     Active Substance: RITUXIMAB
     Indication: MANTLE CELL LYMPHOMA
     Dosage: THE LAST DOSE OF RITUXIMAB SC BEFORE SERIOUS ADVERSE EVENT WAS ADMINISTERED ON 28/SEP/2020 (1400 MG)
     Route: 058
     Dates: start: 20200522

REACTIONS (3)
  - C-reactive protein increased [Not Recovered/Not Resolved]
  - Osteitis [Recovered/Resolved with Sequelae]
  - Hyperthermia [Not Recovered/Not Resolved]

NARRATIVE: CASE EVENT DATE: 20200525
